FAERS Safety Report 22337904 (Version 3)
Quarter: 2023Q2

REPORT INFORMATION
  Report Type: Spontaneous
  Country: US (occurrence: US)
  Receive Date: 20230518
  Receipt Date: 20230524
  Transmission Date: 20230722
  Serious: No
  Sender: FDA-Public Use
  Company Number: US-002147023-NVSC2023US113435

PATIENT
  Sex: Female

DRUGS (1)
  1. TAFINLAR [Suspect]
     Active Substance: DABRAFENIB MESYLATE
     Indication: Brain neoplasm malignant
     Dosage: (75 MG DAILY IN THE EVENING AND 100 MG DAILY EVERY MORNING)
     Route: 048
     Dates: start: 20230419

REACTIONS (3)
  - Muscle spasms [Unknown]
  - Pyrexia [Unknown]
  - Product use in unapproved indication [Unknown]
